FAERS Safety Report 5168827-9 (Version None)
Quarter: 2006Q4

REPORT INFORMATION
  Report Type: 
  Country: None (occurrence: None)
  Receive Date: 20061201
  Receipt Date: 20061116
  Transmission Date: 20070319
  Serious: Yes (Life-Threatening, Hospitalization)
  Sender: FDA-Public Use
  Company Number: 2006SP004088

PATIENT
  Age: 53 Year
  Sex: Male

DRUGS (10)
  1. XOPENEX [Suspect]
     Indication: RESPIRATORY DISTRESS
     Dosage: 1.25 MG/3ML;1X; INHALATION; SEE IMAGE
     Route: 055
     Dates: start: 20061111, end: 20061111
  2. XOPENEX [Suspect]
     Indication: RESPIRATORY DISTRESS
     Dosage: 1.25 MG/3ML;1X; INHALATION; SEE IMAGE
     Route: 055
     Dates: start: 20061114, end: 20061114
  3. PROPOFOL [Concomitant]
  4. SOLU-MEDROL [Concomitant]
  5. SYNTHROID [Concomitant]
  6. FLUCONAZOLE [Concomitant]
  7. VITAMIN CAP [Concomitant]
  8. FOLIC ACID [Concomitant]
  9. AMLODIPINE BESYLATE [Concomitant]
  10. NEXIUM [Concomitant]

REACTIONS (4)
  - BRONCHOSPASM [None]
  - DRUG HYPERSENSITIVITY [None]
  - STRIDOR [None]
  - VOCAL CORD DISORDER [None]
